FAERS Safety Report 8461323-2 (Version None)
Quarter: 2012Q2

REPORT INFORMATION
  Report Type: 
  Country: None (occurrence: None)
  Receive Date: 20120620
  Receipt Date: 20120620
  Transmission Date: 20120825
  Serious: Yes (Life-Threatening, Hospitalization, Disabling, Other)
  Sender: FDA-Public Use
  Company Number: None

PATIENT
  Sex: Female
  Weight: 77.5651 kg

DRUGS (2)
  1. DILTIAZEM [Suspect]
     Indication: HEART RATE INCREASED
     Dosage: 360 MG 1 A DAY
     Dates: start: 20120504
  2. DILTIAZEM [Suspect]
     Indication: HEART RATE INCREASED
     Dosage: 120 MG 1 A DAY
     Dates: start: 20120426

REACTIONS (11)
  - UNEVALUABLE EVENT [None]
  - OEDEMA PERIPHERAL [None]
  - FEELING ABNORMAL [None]
  - DYSPNOEA [None]
  - SWOLLEN TONGUE [None]
  - ASTHENIA [None]
  - NERVOUSNESS [None]
  - DIZZINESS [None]
  - OROPHARYNGEAL PAIN [None]
  - HAEMATEMESIS [None]
  - HEART RATE INCREASED [None]
